FAERS Safety Report 8254454-3 (Version None)
Quarter: 2012Q2

REPORT INFORMATION
  Report Type: 
  Country: None (occurrence: None)
  Receive Date: 20120403
  Receipt Date: 20120327
  Transmission Date: 20120825
  Serious: Yes (Death)
  Sender: FDA-Public Use
  Company Number: US-BIOGENIDEC-2012BI005620

PATIENT
  Age: 57 Year
  Sex: Female

DRUGS (3)
  1. TYSABRI [Suspect]
     Indication: MULTIPLE SCLEROSIS
     Route: 042
     Dates: start: 20070810, end: 20091104
  2. TYSABRI [Suspect]
     Route: 042
     Dates: start: 20100330, end: 20100914
  3. TYSABRI [Suspect]
     Route: 042
     Dates: start: 20100914, end: 20110328

REACTIONS (1)
  - LUNG ADENOCARCINOMA METASTATIC [None]
